FAERS Safety Report 15360509 (Version 5)
Quarter: 2025Q3

REPORT INFORMATION
  Report Type: Spontaneous
  Country: EU (occurrence: EU)
  Receive Date: 20180907
  Receipt Date: 20250707
  Transmission Date: 20251020
  Serious: Yes (Hospitalization, Disabling, Other)
  Sender: AUROBINDO
  Company Number: EU-AUROBINDO-AUR-APL-2018-044474

PATIENT
  Age: 76 Year
  Sex: Female

DRUGS (6)
  1. RISEDRONATE SODIUM [Suspect]
     Active Substance: RISEDRONATE SODIUM
     Indication: Osteoporosis
     Route: 065
     Dates: start: 2002, end: 2007
  2. PROLIA [Suspect]
     Active Substance: DENOSUMAB
     Indication: Osteoporosis
     Route: 065
     Dates: start: 201301, end: 201503
  3. STRONTIUM RANELATE [Suspect]
     Active Substance: STRONTIUM RANELATE
     Indication: Osteoporosis
     Route: 065
     Dates: start: 2007, end: 2009
  4. STRONTIUM RANELATE [Suspect]
     Active Substance: STRONTIUM RANELATE
     Route: 065
  5. ZOLEDRONIC ACID [Suspect]
     Active Substance: ZOLEDRONIC ACID
     Indication: Osteoporosis
     Route: 065
     Dates: start: 200901, end: 201301
  6. PREDNISOLONE [Concomitant]
     Active Substance: PREDNISOLONE
     Indication: Rheumatoid arthritis
     Dosage: 5 MG, QD
     Route: 065

REACTIONS (3)
  - Atypical fracture [Recovered/Resolved]
  - Tibia fracture [Recovered/Resolved with Sequelae]
  - Metaphyseal corner fracture [Recovered/Resolved with Sequelae]

NARRATIVE: CASE EVENT DATE: 20141001
